FAERS Safety Report 9843464 (Version 1)
Quarter: 2013Q4

REPORT INFORMATION
  Report Type: Spontaneous
  Country: US (occurrence: None)
  Receive Date: 20131219
  Receipt Date: 20131219
  Transmission Date: 20140711
  Serious: Yes (Other)
  Sender: FDA-Public Use
  Company Number: 163-20785-13081998

PATIENT
  Age: 65 Year
  Sex: Male

DRUGS (1)
  1. THALOMID (THALIDOMIDE) (100 MILLIGRAM, CAPSULES) [Suspect]
     Indication: PLASMA CELL MYELOMA
     Dosage: 100 MG, 28 IN 28 D, PO
     Route: 048
     Dates: start: 201107, end: 2011

REACTIONS (1)
  - Deep vein thrombosis [None]
